FAERS Safety Report 7036403 (Version 7)
Quarter: 2014Q3

REPORT INFORMATION
  Report Type: Spontaneous
  Country: JP (occurrence: JP)
  Receive Date: 20090629
  Receipt Date: 20140804
  Transmission Date: 20150326
  Serious: Yes (Death)
  Sender: FDA-Public Use
  Company Number: JP-ELI_LILLY_AND_COMPANY-JP200906006538

PATIENT
  Age: 77 Year
  Sex: Male
  Weight: 51 kg

DRUGS (22)
  1. ARTIST [Concomitant]
     Active Substance: CARVEDILOL
     Indication: HYPERTENSION
     Dosage: 2.5 MG, DAILY (1/D)
     Route: 048
  2. METFORMIN [Concomitant]
     Active Substance: METFORMIN HYDROCHLORIDE
     Indication: DIABETES MELLITUS
     Dosage: 250 MG, 3/D
     Route: 048
     Dates: start: 20090513
  3. OXINORM [Concomitant]
     Active Substance: OXYCODONE HYDROCHLORIDE
     Indication: CHEST PAIN
     Dosage: 5 MG, DAILY (1/D)
     Route: 048
     Dates: start: 20090518
  4. CYTOTEC [Concomitant]
     Active Substance: MISOPROSTOL
     Indication: PROPHYLAXIS
     Dosage: 200 UG, 3/D
     Route: 048
     Dates: start: 20090402
  5. AMOBAN [Concomitant]
     Active Substance: ZOPICLONE
     Indication: INSOMNIA
     Dosage: 10 MG, AS NEEDED
     Route: 048
     Dates: start: 20090521
  6. LOXONIN [Concomitant]
     Active Substance: LOXOPROFEN SODIUM
     Indication: CHEST PAIN
     Dosage: 60 MG, 3/D
     Route: 048
     Dates: start: 20090402
  7. NOVAMIN [Concomitant]
     Active Substance: PROCHLORPERAZINE MALEATE
     Indication: PROPHYLAXIS
     Dosage: 15 MG, DAILY (1/D)
     Route: 048
     Dates: start: 20090518
  8. CARBOPLATIN. [Concomitant]
     Active Substance: CARBOPLATIN
     Indication: PLEURAL MESOTHELIOMA MALIGNANT
     Dosage: 300 MG, OTHER
     Route: 042
     Dates: start: 20090512, end: 20090512
  9. MEDICON [Concomitant]
     Active Substance: DEXTROMETHORPHAN HYDROBROMIDE
     Indication: PROPHYLAXIS
     Dosage: 15 MG, DAILY (1/D)
     Route: 048
     Dates: start: 20090508
  10. OXYCONTIN [Concomitant]
     Active Substance: OXYCODONE HYDROCHLORIDE
     Indication: CHEST PAIN
     Dosage: 10 MG, DAILY (1/D)
     Route: 048
     Dates: start: 20090518
  11. DUROTEP [Concomitant]
     Active Substance: FENTANYL
     Dosage: 4.2 MG, DAILY (1/D)
     Route: 062
     Dates: start: 20090526
  12. METHYCOBAL [Concomitant]
     Active Substance: METHYLCOBALAMIN
     Dosage: 1 MG, OTHER
     Route: 030
     Dates: start: 20090503, end: 20090503
  13. DIART [Concomitant]
     Active Substance: AZOSEMIDE
     Indication: HYPERTENSION
     Dosage: 60 MG, DAILY (1/D)
     Route: 048
  14. DECADRON [Concomitant]
     Active Substance: DEXAMETHASONE
     Indication: CHEST PAIN
     Dosage: 1.5 MG, DAILY (1/D)
     Route: 048
     Dates: start: 20090515
  15. PANVITAN [Concomitant]
     Dosage: 1 G, DAILY (1/D)
     Route: 048
     Dates: start: 20090503
  16. OLMETEC [Concomitant]
     Active Substance: OLMESARTAN MEDOXOMIL
     Indication: HYPERTENSION
     Dosage: 20 MG, DAILY (1/D)
     Route: 048
  17. PARIET [Concomitant]
     Active Substance: RABEPRAZOLE SODIUM
     Indication: PROPHYLAXIS
     Dosage: 20 MG, DAILY (1/D)
     Route: 048
  18. STARSIS [Concomitant]
     Active Substance: NATEGLINIDE
     Indication: DIABETES MELLITUS
     Dosage: 90 MG, 3/D
     Route: 048
     Dates: start: 20090513
  19. MAGMITT [Concomitant]
     Active Substance: MAGNESIUM OXIDE
     Indication: CONSTIPATION PROPHYLAXIS
     Dosage: 1320 MG, DAILY (1/D)
     Route: 048
     Dates: start: 20090518
  20. MYSLEE [Concomitant]
     Active Substance: ZOLPIDEM TARTRATE
     Indication: INSOMNIA
     Dosage: 10 MG, AS NEEDED
     Route: 048
     Dates: start: 20090521
  21. ALIMTA [Suspect]
     Active Substance: PEMETREXED DISODIUM
     Indication: PLEURAL MESOTHELIOMA MALIGNANT
     Dosage: 800 MG, OTHER
     Route: 042
     Dates: start: 20090512, end: 20090512
  22. DUROTEP [Concomitant]
     Active Substance: FENTANYL
     Indication: CHEST PAIN
     Dosage: 2.1 MG, OTHER
     Route: 062
     Dates: start: 20090525, end: 20090525

REACTIONS (2)
  - Interstitial lung disease [Fatal]
  - Off label use [Unknown]

NARRATIVE: CASE EVENT DATE: 20090611
